FAERS Safety Report 4348687-6 (Version None)
Quarter: 2004Q2

REPORT INFORMATION
  Report Type: 
  Country: None (occurrence: None)
  Receive Date: 20040423
  Receipt Date: 20040415
  Transmission Date: 20050107
  Serious: Yes (Death)
  Sender: FDA-Public Use
  Company Number: 2004209484DE

PATIENT
  Age: 76 Year
  Sex: Female

DRUGS (5)
  1. FRAGMIN [Suspect]
     Dosage: SUBCUTANEOUS
     Route: 058
     Dates: start: 20040329, end: 20040403
  2. ISOKET RETARD [Concomitant]
  3. FELODIPINE [Concomitant]
  4. PANTOZOL (PANTOPRAZOLE SODIUM) [Concomitant]
  5. MOTILIUM [Concomitant]

REACTIONS (2)
  - POST PROCEDURAL COMPLICATION [None]
  - PULMONARY EMBOLISM [None]
